FAERS Safety Report 7336170-5 (Version None)
Quarter: 2011Q1

REPORT INFORMATION
  Report Type: 
  Country: None (occurrence: None)
  Receive Date: 20110307
  Receipt Date: 20110304
  Transmission Date: 20110831
  Serious: Yes (Other)
  Sender: FDA-Public Use
  Company Number: US-PFIZER INC-2008050449

PATIENT
  Sex: Female

DRUGS (1)
  1. GEODON [Suspect]
     Indication: BIPOLAR I DISORDER
     Dosage: 50 MG, 2X/DAY

REACTIONS (5)
  - ANXIETY [None]
  - NERVOUSNESS [None]
  - SOMNOLENCE [None]
  - FEELING ABNORMAL [None]
  - COGNITIVE DISORDER [None]
